FAERS Safety Report 14385765 (Version 1)
Quarter: 2018Q1

REPORT INFORMATION
  Report Type: Spontaneous
  Country: US (occurrence: US)
  Receive Date: 20180115
  Receipt Date: 20180115
  Transmission Date: 20180509
  Serious: Yes (Hospitalization, Other)
  Sender: FDA-Public Use
  Company Number: US-SA-2017SA047983

PATIENT
  Age: 78 Year
  Sex: Male

DRUGS (6)
  1. TAXOTERE [Suspect]
     Active Substance: DOCETAXEL
     Indication: NEOPLASM MALIGNANT
     Route: 065
     Dates: start: 201701
  2. TAXOTERE [Suspect]
     Active Substance: DOCETAXEL
     Indication: PROSTATE CANCER
     Route: 065
     Dates: start: 20170217, end: 20170217
  3. TAXOTERE [Suspect]
     Active Substance: DOCETAXEL
     Indication: NEOPLASM MALIGNANT
     Route: 065
     Dates: start: 20170217, end: 20170217
  4. TAXOTERE [Suspect]
     Active Substance: DOCETAXEL
     Indication: PROSTATE CANCER
     Route: 065
     Dates: start: 201701
  5. TAXOTERE [Suspect]
     Active Substance: DOCETAXEL
     Indication: BONE CANCER
     Route: 065
     Dates: start: 201701
  6. TAXOTERE [Suspect]
     Active Substance: DOCETAXEL
     Indication: BONE CANCER
     Route: 065
     Dates: start: 20170217, end: 20170217

REACTIONS (4)
  - Neuropathy peripheral [Unknown]
  - Fatigue [Unknown]
  - Osteomyelitis [Recovered/Resolved]
  - Urinary tract infection [Unknown]
